FAERS Safety Report 10421110 (Version 1)
Quarter: 2014Q2

REPORT INFORMATION
  Report Type: Spontaneous
  Country: US (occurrence: None)
  Receive Date: 20140602
  Receipt Date: 20140602
  Transmission Date: 20141212
  Serious: No
  Sender: FDA-Public Use
  Company Number: 163-10004-14060236

PATIENT
  Age: 56 Year
  Sex: Male
  Weight: 81.65 kg

DRUGS (3)
  1. OTEZLA [Suspect]
     Indication: PSORIATIC ARTHROPATHY
     Route: 048
     Dates: start: 20140524
  2. PREDNISONE (PREDNISONE) [Concomitant]
  3. METHOTREXATE (METHOTREXATE) [Concomitant]

REACTIONS (2)
  - Cellulitis [None]
  - Joint injury [None]
